FAERS Safety Report 19586214 (Version 1)
Quarter: 2021Q3

REPORT INFORMATION
  Report Type: Spontaneous
  Country: CN (occurrence: CN)
  Receive Date: 20210720
  Receipt Date: 20210720
  Transmission Date: 20211014
  Serious: Yes (Death, Other)
  Sender: FDA-Public Use
  Company Number: CN-SA-2021SA234597

PATIENT
  Age: 36 Year
  Sex: Male

DRUGS (3)
  1. ETHAMBUTOL [Concomitant]
     Active Substance: ETHAMBUTOL HYDROCHLORIDE
     Indication: PULMONARY TUBERCULOSIS
     Dosage: 750 MG
  2. ISONIAZID. [Suspect]
     Active Substance: ISONIAZID
     Indication: PULMONARY TUBERCULOSIS
     Dosage: 300 MG, QD
  3. RIFAMPICIN [Suspect]
     Active Substance: RIFAMPIN
     Indication: PULMONARY TUBERCULOSIS
     Dosage: 450 MG

REACTIONS (13)
  - Coma hepatic [Fatal]
  - Condition aggravated [Fatal]
  - Ascites [Fatal]
  - Oedema [Fatal]
  - Haemorrhage subcutaneous [Fatal]
  - Oliguria [Fatal]
  - Pyrexia [Fatal]
  - Jaundice [Fatal]
  - Decreased appetite [Fatal]
  - Abdominal rebound tenderness [Fatal]
  - Toxicity to various agents [Fatal]
  - Hepatic function abnormal [Fatal]
  - Ocular icterus [Fatal]
